FAERS Safety Report 9225068 (Version 1)
Quarter: 2013Q2

REPORT INFORMATION
  Report Type: Spontaneous
  Country: DE (occurrence: DE)
  Receive Date: 20130411
  Receipt Date: 20130411
  Transmission Date: 20140414
  Serious: Yes (Death, Hospitalization)
  Sender: FDA-Public Use
  Company Number: DE-JNJFOC-20130216457

PATIENT
  Age: 78 Year
  Sex: Female

DRUGS (10)
  1. GLIMEPIRIDE [Concomitant]
     Indication: TYPE 2 DIABETES MELLITUS
     Route: 065
  2. MOXONIDIN [Concomitant]
     Indication: ESSENTIAL HYPERTENSION
     Route: 048
  3. DISALUNIL [Concomitant]
     Route: 048
  4. BISOPROLOL [Concomitant]
     Route: 048
  5. RAMILICH [Concomitant]
     Indication: LEFT VENTRICULAR FAILURE
     Route: 048
  6. XARELTO [Suspect]
     Indication: ATRIAL FIBRILLATION
     Route: 048
  7. XARELTO [Suspect]
     Indication: CEREBROVASCULAR ACCIDENT
     Route: 048
  8. SIMVASTATIN [Concomitant]
     Route: 048
  9. LANTUS [Concomitant]
     Route: 065
  10. METFORMIN [Concomitant]
     Indication: TYPE 2 DIABETES MELLITUS
     Route: 065

REACTIONS (7)
  - Cerebral haemorrhage [Fatal]
  - Brain compression [Fatal]
  - Loss of consciousness [Unknown]
  - Hypoglycaemia [Unknown]
  - Brain midline shift [Unknown]
  - Brain oedema [Unknown]
  - Cranial nerve disorder [Unknown]
